FAERS Safety Report 14961870 (Version 1)
Quarter: 2018Q2

REPORT INFORMATION
  Report Type: Spontaneous
  Country: BR (occurrence: BR)
  Receive Date: 20180601
  Receipt Date: 20180601
  Transmission Date: 20180711
  Serious: Yes (Other)
  Sender: FDA-Public Use
  Company Number: BR-009507513-1805BRA012797

PATIENT
  Age: 52 Year
  Sex: Male
  Weight: 80 kg

DRUGS (2)
  1. SIMVASTATIN. [Suspect]
     Active Substance: SIMVASTATIN
     Indication: BLOOD CHOLESTEROL ABNORMAL
     Dosage: 1 TABLET (10 MG), QD
     Route: 048
     Dates: start: 2010
  2. DIAZEPAM. [Concomitant]
     Active Substance: DIAZEPAM
     Indication: INSOMNIA
     Dosage: 10 MG, 1 TABLET/DAY
     Dates: start: 2003

REACTIONS (3)
  - Hypertension [Unknown]
  - Arrhythmia [Unknown]
  - Asthma [Unknown]

NARRATIVE: CASE EVENT DATE: 2010
